FAERS Safety Report 17962447 (Version 1)
Quarter: 2020Q2

REPORT INFORMATION
  Report Type: Spontaneous
  Country: US (occurrence: US)
  Receive Date: 20200629
  Receipt Date: 20200629
  Transmission Date: 20200714
  Serious: Yes (Hospitalization)
  Sender: FDA-Public Use
  Company Number: None

PATIENT
  Age: 58 Year
  Sex: Female

DRUGS (2)
  1. DONEPEZIL 10MG TAB [Concomitant]
     Dates: start: 20200619, end: 20200625
  2. ROPINIROLE. [Suspect]
     Active Substance: ROPINIROLE
     Route: 048
     Dates: start: 20200625, end: 20200625

REACTIONS (3)
  - Head injury [None]
  - Fall [None]
  - Loss of consciousness [None]

NARRATIVE: CASE EVENT DATE: 20200626
